FAERS Safety Report 8500591-5 (Version None)
Quarter: 2012Q3

REPORT INFORMATION
  Report Type: 
  Country: None (occurrence: None)
  Receive Date: 20120703
  Receipt Date: 20120703
  Transmission Date: 20120928
  Serious: Yes (Other)
  Sender: FDA-Public Use
  Company Number: None

PATIENT
  Sex: Male

DRUGS (5)
  1. TRAMADOL HCL [Concomitant]
  2. METOPROLOL TARTRATE [Concomitant]
  3. PREDNISONE [Concomitant]
  4. PERCOCET [Concomitant]
  5. ENBREL [Suspect]
     Indication: PSORIATIC ARTHROPATHY
     Dosage: 50MG WEEKLY SQ
     Route: 058
     Dates: start: 20120607, end: 20120628

REACTIONS (1)
  - DIZZINESS [None]
